FAERS Safety Report 11777427 (Version 1)
Quarter: 2015Q4

REPORT INFORMATION
  Report Type: Spontaneous
  Country: US (occurrence: US)
  Receive Date: 20151125
  Receipt Date: 20151125
  Transmission Date: 20160304
  Serious: No
  Sender: FDA-Public Use
  Company Number: US-BAYER-2015-469586

PATIENT
  Age: 68 Year
  Sex: Female
  Weight: 66.67 kg

DRUGS (1)
  1. CLARITIN [Suspect]
     Active Substance: LORATADINE
     Dosage: 1 DF, QD
     Route: 048
     Dates: start: 20151106

REACTIONS (1)
  - Insomnia [None]

NARRATIVE: CASE EVENT DATE: 20151108
